FAERS Safety Report 6117525-3 (Version None)
Quarter: 2009Q1

REPORT INFORMATION
  Report Type: 
  Country: None (occurrence: None)
  Receive Date: 20090314
  Receipt Date: 20090121
  Transmission Date: 20090719
  Serious: No
  Sender: FDA-Public Use
  Company Number: US-ABBOTT-09P-163-0499292-00

PATIENT
  Sex: Male
  Weight: 47.67 kg

DRUGS (7)
  1. HUMIRA [Suspect]
     Indication: CROHN'S DISEASE
     Route: 058
     Dates: start: 20080101, end: 20081201
  2. HUMIRA [Suspect]
     Indication: FISTULA
     Route: 058
     Dates: start: 20080101, end: 20080101
  3. HUMIRA [Suspect]
     Route: 058
     Dates: start: 20080201, end: 20080201
  4. SULFASALAZINE [Concomitant]
     Indication: CROHN'S DISEASE
     Route: 048
  5. IMODIUM [Concomitant]
     Indication: DIARRHOEA
     Route: 048
  6. KLONOPIN [Concomitant]
     Indication: ANXIETY
     Dosage: DAILY AS NEEDED
     Route: 048
  7. ALPRAZOLAM [Concomitant]
     Indication: INSOMNIA
     Dosage: ONE AT BEDTIME AS NEEDED
     Route: 048

REACTIONS (1)
  - FISTULA DISCHARGE [None]
